FAERS Safety Report 8494978-7 (Version None)
Quarter: 2012Q3

REPORT INFORMATION
  Report Type: 
  Country: None (occurrence: None)
  Receive Date: 20120709
  Receipt Date: 20120627
  Transmission Date: 20120928
  Serious: Yes (Other)
  Sender: FDA-Public Use
  Company Number: JP-BRISTOL-MYERS SQUIBB COMPANY-16666398

PATIENT
  Age: 56 Year
  Sex: Female

DRUGS (5)
  1. SEPAZON [Suspect]
     Dosage: TAB
     Route: 048
     Dates: start: 20120615
  2. LEVOTHYROXINE SODIUM [Concomitant]
     Dosage: TAB
     Dates: start: 20030723
  3. TRIAZOLAM [Concomitant]
     Dosage: TAB;21JUN2012:0.25MG
     Dates: start: 20120329
  4. ARIPIPRAZOLE [Suspect]
     Indication: SCHIZOPHRENIA
     Route: 030
     Dates: start: 20120329, end: 20120524
  5. LONASEN [Suspect]
     Indication: DELUSION OF REFERENCE
     Dosage: 30MAY2012-UNKNOWN, 21JUN2012-UNKNOWN(12MG),6MG BID:24JUN+26JUN12-UNKNOWN
     Route: 048
     Dates: start: 20120530

REACTIONS (3)
  - SUICIDAL IDEATION [None]
  - DELUSION OF REFERENCE [None]
  - SUICIDE ATTEMPT [None]
